FAERS Safety Report 6554882-8 (Version None)
Quarter: 2010Q1

REPORT INFORMATION
  Report Type: 
  Country: None (occurrence: None)
  Receive Date: 20100125
  Receipt Date: 20100111
  Transmission Date: 20100710
  Serious: Yes (Hospitalization)
  Sender: FDA-Public Use
  Company Number: 2010AC000055

PATIENT
  Age: 60 Year
  Sex: Female

DRUGS (105)
  1. DIGOXIN [Suspect]
     Dosage: 0.25 MG; QD; PO
     Route: 048
     Dates: start: 20000101, end: 20090428
  2. VI-Q-TUSS SYRUP [Concomitant]
  3. LASIX [Concomitant]
  4. COREG [Concomitant]
  5. LANTUS [Concomitant]
  6. DIOVAN [Concomitant]
  7. LIPITOR [Concomitant]
  8. ALLEGRA [Concomitant]
  9. XANAX [Concomitant]
  10. MULTI-VITAMIN [Concomitant]
  11. ASPIRIN [Concomitant]
  12. EFFEXOR [Concomitant]
  13. FLEXERIL [Concomitant]
  14. METANX [Concomitant]
  15. NIACIN [Concomitant]
  16. IBUPROFEN [Concomitant]
  17. ALDACTONE [Concomitant]
  18. PRILOSEC [Concomitant]
  19. COZAAR [Concomitant]
  20. CELEXA [Concomitant]
  21. HUMULIN R [Concomitant]
  22. OPTIVA [Concomitant]
  23. REFRESH [Concomitant]
  24. DIPHEN/ATROP [Concomitant]
  25. HYOSCYAMINE [Concomitant]
  26. CEPHALEXIN [Concomitant]
  27. AMOXICILLIN [Concomitant]
  28. GUAIFENEX [Concomitant]
  29. HYDROCODONE [Concomitant]
  30. HUMALOG [Concomitant]
  31. ACULAR [Concomitant]
  32. CLINDAMYCIN [Concomitant]
  33. MYTUSSIN [Concomitant]
  34. PROLIX [Concomitant]
  35. ZITHROMAX [Concomitant]
  36. ALPRAZOLAM [Concomitant]
  37. HYDROXYZ HCL [Concomitant]
  38. ZYRTEC [Concomitant]
  39. FLAVOXATE [Concomitant]
  40. PREMARIN [Concomitant]
  41. LEVAQUIN [Concomitant]
  42. NASONEX [Concomitant]
  43. CLONAZEPAM [Concomitant]
  44. NITROFURANTOIN [Concomitant]
  45. MECLIZINE [Concomitant]
  46. TRIMETHOBENZ [Concomitant]
  47. KETEK [Concomitant]
  48. NITROFUR [Concomitant]
  49. TERCONAZOLE [Concomitant]
  50. CLINDESSE [Concomitant]
  51. METANK [Concomitant]
  52. TRIMETHOPRIM [Concomitant]
  53. PROPO-N/APAP [Concomitant]
  54. ERYTHROMYCIN [Concomitant]
  55. GUIADEX [Concomitant]
  56. CYCLOBENZAPR [Concomitant]
  57. METANX [Concomitant]
  58. PREDNISOLONE [Concomitant]
  59. BACITRACIN [Concomitant]
  60. FLUCONAZOLE [Concomitant]
  61. DOXYCYCL HYC [Concomitant]
  62. PROCHLORPER [Concomitant]
  63. UROXATRAL [Concomitant]
  64. CLARITHROMYCIN [Concomitant]
  65. J-TAN D [Concomitant]
  66. SINGULAIR [Concomitant]
  67. VERAMYST [Concomitant]
  68. NEVANAC [Concomitant]
  69. VIVELLE-DOT [Concomitant]
  70. PROMETRIUM [Concomitant]
  71. ARMOUR [Concomitant]
  72. LOTREL [Concomitant]
  73. ACTOS [Concomitant]
  74. VAZOTAN [Concomitant]
  75. PROVENTIL [Concomitant]
  76. AZOR [Concomitant]
  77. RESTASIS [Concomitant]
  78. DIAMOX SRC [Concomitant]
  79. LOTEMAX [Concomitant]
  80. RISAQUAD [Concomitant]
  81. NITROFUR [Concomitant]
  82. VENLAFAXINE [Concomitant]
  83. EFFEXOR [Concomitant]
  84. REFRESH [Concomitant]
  85. METHYLPRED [Concomitant]
  86. CHERATUSSIN [Concomitant]
  87. BENICAR [Concomitant]
  88. FLAVOXATE [Concomitant]
  89. ODANSETRON [Concomitant]
  90. TERBINAFINE [Concomitant]
  91. TAMIFLU [Concomitant]
  92. MACRODANTIN [Concomitant]
  93. SPIRONOLACTONE [Concomitant]
  94. CALCIUM [Concomitant]
  95. FLOMAX [Concomitant]
  96. UROXATRAL [Concomitant]
  97. METFORMIN HCL [Concomitant]
  98. ASPIRIN [Concomitant]
  99. COREG [Concomitant]
  100. DIOVAN [Concomitant]
  101. EFFEXOR [Concomitant]
  102. FUROSEMIDE [Concomitant]
  103. LANTUS [Concomitant]
  104. LIPITOR [Concomitant]
  105. NOVOLOG [Concomitant]

REACTIONS (54)
  - ABDOMINAL PAIN [None]
  - ANGIOMYOLIPOMA [None]
  - ANXIETY [None]
  - ASTHENIA [None]
  - BACTERIAL TEST POSITIVE [None]
  - BLINDNESS UNILATERAL [None]
  - BLISTER [None]
  - BLOOD GLUCOSE DECREASED [None]
  - BREAST DISORDER [None]
  - BREAST MASS [None]
  - CAPILLARY DISORDER [None]
  - CARDIAC FAILURE CONGESTIVE [None]
  - CORNEAL EROSION [None]
  - CORNEAL OPACITY [None]
  - COUGH [None]
  - CULTURE URINE POSITIVE [None]
  - DEHYDRATION [None]
  - DIARRHOEA [None]
  - DIZZINESS [None]
  - ECONOMIC PROBLEM [None]
  - ESCHERICHIA INFECTION [None]
  - EYE IRRITATION [None]
  - EYELID PTOSIS [None]
  - FATIGUE [None]
  - FEELING ABNORMAL [None]
  - GOITRE [None]
  - HYPERHIDROSIS [None]
  - HYPERTENSION [None]
  - HYPOTENSION [None]
  - INTRAOCULAR LENS IMPLANT [None]
  - IRITIS [None]
  - MALAISE [None]
  - MULTIPLE INJURIES [None]
  - MUSCLE SPASMS [None]
  - NAUSEA [None]
  - NEUROPATHY PERIPHERAL [None]
  - ONYCHOMYCOSIS [None]
  - PAIN [None]
  - PAIN IN EXTREMITY [None]
  - POLLAKIURIA [None]
  - PROTEINURIA [None]
  - RALES [None]
  - SEASONAL ALLERGY [None]
  - SEBORRHOEIC KERATOSIS [None]
  - STAPHYLOCOCCAL INFECTION [None]
  - SYNCOPE [None]
  - TENOSYNOVITIS [None]
  - THERAPEUTIC AGENT TOXICITY [None]
  - ULCER [None]
  - ULCERATIVE KERATITIS [None]
  - URINARY RETENTION [None]
  - URINE ODOUR ABNORMAL [None]
  - VENTRICULAR FIBRILLATION [None]
  - VOMITING [None]
